FAERS Safety Report 6704933-2 (Version None)
Quarter: 2010Q2

REPORT INFORMATION
  Report Type: 
  Country: None (occurrence: None)
  Receive Date: 20100430
  Receipt Date: 20100217
  Transmission Date: 20101027
  Serious: No
  Sender: FDA-Public Use
  Company Number: US-ASTRAZENECA-2010SE06959

PATIENT
  Age: 74 Year
  Sex: Female
  Weight: 63.5 kg

DRUGS (9)
  1. NEXIUM [Suspect]
     Indication: GASTROOESOPHAGEAL REFLUX DISEASE
     Route: 048
  2. LIPITOR [Suspect]
  3. LEVOXYL [Concomitant]
  4. CALTRATE [Concomitant]
  5. ASPIRIN [Concomitant]
  6. SIMVASTATIN [Concomitant]
  7. EVISTA [Concomitant]
  8. VITAMINS [Concomitant]
  9. GLUCOSAMINE CHONDROITIN [Concomitant]

REACTIONS (1)
  - MUSCLE SPASMS [None]
